FAERS Safety Report 16441034 (Version 1)
Quarter: 2019Q2

REPORT INFORMATION
  Report Type: Report from Study
  Country: US (occurrence: US)
  Receive Date: 20190617
  Receipt Date: 20190617
  Transmission Date: 20190711
  Serious: Yes (Other)
  Sender: FDA-Public Use
  Company Number: US-PFIZER INC-2019132427

PATIENT
  Age: 61 Year
  Sex: Female

DRUGS (1)
  1. XELJANZ XR [Suspect]
     Active Substance: TOFACITINIB CITRATE
     Dosage: 11 MG, UNK
     Dates: start: 20181128, end: 20190503

REACTIONS (5)
  - Non-Hodgkin^s lymphoma stage IV [Unknown]
  - Gout [Unknown]
  - Peripheral swelling [Unknown]
  - Product dose omission [Unknown]
  - Pain in extremity [Unknown]
